FAERS Safety Report 5333958-7 (Version None)
Quarter: 2007Q2

REPORT INFORMATION
  Report Type: 
  Country: None (occurrence: None)
  Receive Date: 20070524
  Receipt Date: 20070516
  Transmission Date: 20071010
  Serious: Yes (Hospitalization, Other)
  Sender: FDA-Public Use
  Company Number: JP-PFIZER INC-2007028979

PATIENT
  Age: 81 Year
  Sex: Female

DRUGS (4)
  1. NORVASC [Suspect]
     Dosage: DAILY DOSE:5MG-FREQ:DAILY
     Route: 048
  2. NORVASC [Suspect]
     Dosage: DAILY DOSE:5MG-FREQ:DAILY
     Route: 048
     Dates: start: 20070405, end: 20070407
  3. BLOPRESS [Suspect]
     Dosage: DAILY DOSE:8MG-FREQ:DAILY
     Route: 048
  4. BLOPRESS [Suspect]
     Dosage: DAILY DOSE:8MG-FREQ:DAILY
     Route: 048
     Dates: start: 20070405, end: 20070407

REACTIONS (4)
  - ALANINE AMINOTRANSFERASE INCREASED [None]
  - ASPARTATE AMINOTRANSFERASE INCREASED [None]
  - BLOOD CREATINE PHOSPHOKINASE INCREASED [None]
  - BLOOD LACTATE DEHYDROGENASE INCREASED [None]
